FAERS Safety Report 5351816-9 (Version None)
Quarter: 2007Q2

REPORT INFORMATION
  Report Type: 
  Country: None (occurrence: None)
  Receive Date: 20070521
  Receipt Date: 20070305
  Transmission Date: 20071010
  Serious: No
  Sender: FDA-Public Use
  Company Number: WAES 0703USA00599

PATIENT
  Age: 73 Year
  Sex: Female

DRUGS (6)
  1. JANUVIA [Suspect]
     Indication: DIABETES MELLITUS NON-INSULIN-DEPENDENT
     Dosage: 50 MG/DAILY/PO
     Route: 048
     Dates: start: 20070228
  2. CATAPRES [Concomitant]
  3. HYZAAR [Concomitant]
  4. LASIX [Concomitant]
  5. PREVACID [Concomitant]
  6. ZETIA [Concomitant]

REACTIONS (4)
  - DRUG INEFFECTIVE [None]
  - MALAISE [None]
  - MUSCULAR WEAKNESS [None]
  - TREMOR [None]
